FAERS Safety Report 8953013 (Version 1)
Quarter: 2012Q4

REPORT INFORMATION
  Report Type: 
  Country: JP (occurrence: JP)
  Receive Date: 20121205
  Receipt Date: 20121205
  Transmission Date: 20130627
  Serious: Yes (Other)
  Sender: FDA-Public Use
  Company Number: JP-PFIZER INC-2012305138

PATIENT
  Age: 70 Year
  Sex: Female

DRUGS (3)
  1. LYRICA [Suspect]
     Indication: POST HERPETIC NEURALGIA
     Dosage: 150 mg (75 mg x 2 capsules) per day 150 mg (75 mg x 2 capsules) per day
     Route: 048
     Dates: start: 2011
  2. LYRICA [Suspect]
     Dosage: 75 mg/day
     Route: 048
  3. LYRICA [Suspect]
     Dosage: 25 mg/day and 50 mg/day on alternate days (sometimes 50 mg/day on consequtive days)
     Route: 048

REACTIONS (4)
  - Dysstasia [Unknown]
  - Hypoaesthesia [Unknown]
  - Sensation of heaviness [Unknown]
  - Gait disturbance [Unknown]
